FAERS Safety Report 21904276 (Version 1)
Quarter: 2023Q1

REPORT INFORMATION
  Report Type: Spontaneous
  Country: CR (occurrence: None)
  Receive Date: 20230124
  Receipt Date: 20230124
  Transmission Date: 20230418
  Serious: Yes (Other)
  Sender: FDA-Public Use
  Company Number: CR-ROCHE-3269129

PATIENT
  Age: 61 Year
  Sex: Male

DRUGS (1)
  1. VISMODEGIB [Suspect]
     Active Substance: VISMODEGIB
     Indication: Basal cell carcinoma
     Dosage: DOSE AND FREQUENCY WERE NOT REPORTED
     Route: 065

REACTIONS (6)
  - Anaemia megaloblastic [Unknown]
  - Thrombocytopenia [Unknown]
  - Weight decreased [Not Recovered/Not Resolved]
  - Dysgeusia [Recovering/Resolving]
  - Hypovitaminosis [Unknown]
  - Decreased appetite [Unknown]
